FAERS Safety Report 21198965 (Version 1)
Quarter: 2022Q3

REPORT INFORMATION
  Report Type: Report from Study
  Country: CA (occurrence: CA)
  Receive Date: 20220811
  Receipt Date: 20220811
  Transmission Date: 20221027
  Serious: Yes (Hospitalization)
  Sender: FDA-Public Use
  Company Number: CA-JNJFOC-20220214403

PATIENT
  Age: 17 Year
  Sex: Male
  Weight: 60 kg

DRUGS (2)
  1. REMICADE [Suspect]
     Active Substance: INFLIXIMAB
     Indication: Colitis ulcerative
     Dosage: 10MG/KG - EVERY 0,1,4,12 WEEKS
     Route: 042
     Dates: start: 20220221
  2. REMICADE [Suspect]
     Active Substance: INFLIXIMAB
     Dosage: 2 DOSE AT 700 MG
     Route: 042

REACTIONS (4)
  - Hospitalisation [Unknown]
  - Off label use [Unknown]
  - Product prescribing error [Unknown]
  - Incorrect drug administration rate [Unknown]

NARRATIVE: CASE EVENT DATE: 20220708
